FAERS Safety Report 5469303-6 (Version None)
Quarter: 2007Q3

REPORT INFORMATION
  Report Type: 
  Country: None (occurrence: None)
  Receive Date: 20070927
  Receipt Date: 20070918
  Transmission Date: 20080115
  Serious: Yes (Death)
  Sender: FDA-Public Use
  Company Number: US-ROCHE-519036

PATIENT
  Age: 80 Year
  Sex: Female

DRUGS (1)
  1. CAPECITABINE [Suspect]
     Indication: GASTROINTESTINAL CARCINOMA
     Route: 048
     Dates: start: 20070823

REACTIONS (1)
  - DEATH [None]
